FAERS Safety Report 10817389 (Version 3)
Quarter: 2015Q1

REPORT INFORMATION
  Report Type: Spontaneous
  Country: NL (occurrence: None)
  Receive Date: 20150213
  Receipt Date: 20150323
  Transmission Date: 20150721
  Serious: Yes (Other)
  Sender: FDA-Public Use
  Company Number: 2015-10642

PATIENT
  Age: 67 Year
  Sex: Male

DRUGS (2)
  1. BETADINE (POVIDONE-IODINE) [Concomitant]
  2. EYLEA [Suspect]
     Active Substance: AFLIBERCEPT
     Indication: AGE-RELATED MACULAR DEGENERATION
     Route: 031
     Dates: start: 20140528, end: 20140528

REACTIONS (4)
  - Uveitis [None]
  - Multiple use of single-use product [None]
  - Product quality issue [None]
  - Conjunctivitis [None]

NARRATIVE: CASE EVENT DATE: 20150117
